FAERS Safety Report 4720469-2 (Version None)
Quarter: 2005Q3

REPORT INFORMATION
  Report Type: 
  Country: None (occurrence: None)
  Receive Date: 20050721
  Receipt Date: 20040713
  Transmission Date: 20060218
  Serious: No
  Sender: FDA-Public Use
  Company Number: US-BRISTOL-MYERS SQUIBB COMPANY-12649471

PATIENT
  Age: 66 Year
  Sex: Female
  Weight: 96 kg

DRUGS (8)
  1. GLUCOVANCE [Suspect]
     Indication: DIABETES MELLITUS
     Route: 048
  2. GLYBURIDE [Concomitant]
     Indication: DIABETES MELLITUS
     Dosage: DOSE INCREASED TO 10 MILLIGRAMS TWICE DAILY ON 13-JUL-2004.
  3. ACTOS [Concomitant]
  4. LEVOXYL [Concomitant]
  5. VIOXX [Concomitant]
  6. ENALAPRIL [Concomitant]
  7. ZOCOR [Concomitant]
  8. FUROSEMIDE [Concomitant]

REACTIONS (2)
  - BLOOD GLUCOSE INCREASED [None]
  - DIARRHOEA [None]
